FAERS Safety Report 9727264 (Version 2)
Quarter: 2014Q1

REPORT INFORMATION
  Report Type: Spontaneous
  Country: US (occurrence: US)
  Receive Date: 20131203
  Receipt Date: 20140121
  Transmission Date: 20141002
  Serious: No
  Sender: FDA-Public Use
  Company Number: US-PFIZER INC-2013343443

PATIENT
  Age: 61 Year
  Sex: Female

DRUGS (16)
  1. AUGMENTIN [Suspect]
     Indication: INFECTION
     Dosage: UNK
  2. DARVOCET [Suspect]
     Indication: PAIN
     Dosage: UNK
  3. LOVASTATIN [Suspect]
     Indication: BLOOD CHOLESTEROL INCREASED
     Dosage: 20 MG, 1X/DAY (AT HS)
     Route: 048
     Dates: start: 20091109, end: 20100204
  4. ACYCLOVIR [Concomitant]
     Dosage: 400 MG, 3X/DAY
     Dates: start: 20131014
  5. OMEPRAZOLE [Concomitant]
     Dosage: 20 MG, DAILY
     Dates: start: 20101206
  6. SINGULAIR [Concomitant]
     Dosage: 10 MG, 1X/DAY
     Dates: start: 20110811
  7. LORATADINE [Concomitant]
     Dosage: 10 MG, DAILY
     Dates: start: 20081001
  8. TRAMADOL [Concomitant]
     Dosage: 100 MG, 4X/DAY
     Dates: start: 20131014
  9. LYRICA [Concomitant]
     Dosage: 50 MG, 2X/DAY
     Dates: start: 20121105
  10. CELEBREX [Concomitant]
     Dosage: 200 MG, 2X/DAY
     Dates: start: 20131115
  11. LORAZEPAM [Concomitant]
     Dosage: 1 MG, 2X/DAY
     Dates: start: 20100920
  12. AMBIEN [Concomitant]
     Dosage: 10 MG, AS NEEDED
     Dates: start: 20130225
  13. CRESTOR [Concomitant]
     Dosage: 40 MG, 1X/DAY
     Dates: start: 20110625
  14. ASACOL [Concomitant]
     Dosage: 800 MG, 2X/DAY
     Dates: start: 20120106
  15. PROPRANOLOL HCL W/HYDROCHLOROTHIAZIDE [Concomitant]
     Dosage: 40 MG, 2X/DAY
     Dates: start: 20130404
  16. NORCO [Concomitant]
     Dosage: 10-325 MG TABS, EVERY 6 HOURS AS NEEDED
     Dates: start: 20131115

REACTIONS (3)
  - Syncope [Recovered/Resolved]
  - Drug hypersensitivity [Unknown]
  - Muscle spasms [Recovered/Resolved]
